FAERS Safety Report 25105892 (Version 11)
Quarter: 2025Q4

REPORT INFORMATION
  Report Type: Report from Study
  Country: EU (occurrence: EU)
  Receive Date: 20250321
  Receipt Date: 20251217
  Transmission Date: 20260118
  Serious: Yes (Hospitalization)
  Sender: ABBVIE
  Company Number: EU-ABBVIE-6153712

PATIENT
  Age: 75 Year
  Sex: Female

DRUGS (6)
  1. FOSCARBIDOPA\FOSLEVODOPA [Suspect]
     Active Substance: FOSCARBIDOPA\FOSLEVODOPA
     Indication: Parkinson^s disease
     Dosage: CR: 0.24 ML/H, CRH: 0.26 ML/H,
     Route: 058
     Dates: start: 20250224, end: 2025
  2. FOSCARBIDOPA\FOSLEVODOPA [Suspect]
     Active Substance: FOSCARBIDOPA\FOSLEVODOPA
     Dosage: ADJUSTED DOSE:CR: 0.28 ML/H, CRH: 0.30 ML/H, ED: 0.30 ML, SD: 0.60 ML
     Route: 058
     Dates: start: 2025, end: 2025
  3. FOSCARBIDOPA\FOSLEVODOPA [Suspect]
     Active Substance: FOSCARBIDOPA\FOSLEVODOPA
     Dosage: CRN: 0,18 ML/H, CR: 0,28 ML/H, CRH:0,29 ML/H, ED: 0,30 ML
     Route: 058
     Dates: start: 2025, end: 2025
  4. FOSCARBIDOPA\FOSLEVODOPA [Suspect]
     Active Substance: FOSCARBIDOPA\FOSLEVODOPA
     Dosage: SD: 0.9 ML, CRN: 0.15 ML/H, CR: 0.30 ML/H, CRH: 0.31 ML/H, ED: 0.15 ML ?16-HOUR THERAPY
     Route: 058
     Dates: start: 2025, end: 2025
  5. FOSCARBIDOPA\FOSLEVODOPA [Suspect]
     Active Substance: FOSCARBIDOPA\FOSLEVODOPA
     Dosage: CR: 0, 30 ML/H, CRN: 0.20 ML/H, CRH: 0.31 ML/H, ED: 0.30 ML
     Route: 058
     Dates: start: 2025, end: 2025
  6. FOSCARBIDOPA\FOSLEVODOPA [Suspect]
     Active Substance: FOSCARBIDOPA\FOSLEVODOPA
     Dosage: CR: 0.32 ML/H, CRN: 0.20 ML/H, CRH: NONE, ED: 0.30 ML
     Route: 058
     Dates: start: 2025

REACTIONS (11)
  - Infection [Recovering/Resolving]
  - On and off phenomenon [Recovered/Resolved]
  - Injection site induration [Recovering/Resolving]
  - Dizziness [Not Recovered/Not Resolved]
  - On and off phenomenon [Recovered/Resolved]
  - Hallucination [Recovered/Resolved]
  - On and off phenomenon [Not Recovered/Not Resolved]
  - Dyskinesia [Not Recovered/Not Resolved]
  - Tremor [Not Recovered/Not Resolved]
  - On and off phenomenon [Not Recovered/Not Resolved]
  - Malaise [Not Recovered/Not Resolved]

NARRATIVE: CASE EVENT DATE: 20250101
